FAERS Safety Report 7789438-2 (Version None)
Quarter: 2011Q3

REPORT INFORMATION
  Report Type: 
  Country: None (occurrence: None)
  Receive Date: 20110930
  Receipt Date: 20110921
  Transmission Date: 20111222
  Serious: Yes (Hospitalization)
  Sender: FDA-Public Use
  Company Number: US-ACTELION-A-NJ2011-54500

PATIENT

DRUGS (5)
  1. TRACLEER [Suspect]
     Indication: PULMONARY ARTERIAL HYPERTENSION
     Dosage: UNK
     Route: 048
     Dates: start: 20080728
  2. COUMADIN [Concomitant]
  3. OXYGEN [Concomitant]
  4. REVATIO [Concomitant]
  5. EPOGEN [Concomitant]

REACTIONS (1)
  - BACTERAEMIA [None]
